FAERS Safety Report 17942243 (Version 3)
Quarter: 2020Q3

REPORT INFORMATION
  Report Type: Report from Study
  Country: US (occurrence: US)
  Receive Date: 20200624
  Receipt Date: 20200804
  Transmission Date: 20201103
  Serious: No
  Sender: FDA-Public Use
  Company Number: NVSC2020US177359

PATIENT
  Sex: Female

DRUGS (1)
  1. KISQALI [Suspect]
     Active Substance: RIBOCICLIB
     Indication: PRODUCT USED FOR UNKNOWN INDICATION
     Route: 048

REACTIONS (5)
  - White blood cell count decreased [Unknown]
  - Constipation [Unknown]
  - Labelled drug-food interaction medication error [Unknown]
  - Nausea [Recovered/Resolved with Sequelae]
  - Diarrhoea [Unknown]
